FAERS Safety Report 14745120 (Version 2)
Quarter: 2018Q2

REPORT INFORMATION
  Report Type: Report from Study
  Country: CA (occurrence: CA)
  Receive Date: 20180411
  Receipt Date: 20180510
  Transmission Date: 20180711
  Serious: Yes (Other)
  Sender: FDA-Public Use
  Company Number: CA-BRISTOL-MYERS SQUIBB COMPANY-BMS-2018-030025

PATIENT
  Age: 68 Year
  Sex: Female

DRUGS (1)
  1. ABATACEPT [Suspect]
     Active Substance: ABATACEPT
     Indication: RHEUMATOID ARTHRITIS
     Dosage: 750 MG, Q4WK
     Route: 042
     Dates: start: 20171109, end: 20180329

REACTIONS (4)
  - Fall [Unknown]
  - Upper limb fracture [Recovered/Resolved]
  - Postoperative wound infection [Unknown]
  - Postoperative wound complication [Unknown]

NARRATIVE: CASE EVENT DATE: 20180318
